FAERS Safety Report 11420808 (Version 1)
Quarter: 2015Q3

REPORT INFORMATION
  Report Type: Spontaneous
  Country: US (occurrence: US)
  Receive Date: 20150826
  Receipt Date: 20150826
  Transmission Date: 20151125
  Serious: No
  Sender: FDA-Public Use
  Company Number: US-BRACCO-011399

PATIENT

DRUGS (2)
  1. KINEVAC [Suspect]
     Active Substance: SINCALIDE
     Indication: HEPATOBILIARY SCAN
     Dosage: 0.02 MCG/KG OF PATIENT WEIGHT, INFUSED AT 1 ML PER MINUTE OVER 10 MINUTES IN SALINE
     Route: 042
     Dates: start: 2013
  2. CHOLETEC [Concomitant]
     Active Substance: TECHNETIUM TC-99M MEBROFENIN
     Dates: start: 2013

REACTIONS (1)
  - Drug effect decreased [Unknown]

NARRATIVE: CASE EVENT DATE: 2013
